FAERS Safety Report 10928330 (Version 21)
Quarter: 2019Q4

REPORT INFORMATION
  Report Type: Spontaneous
  Country: FR (occurrence: FR)
  Receive Date: 20150319
  Receipt Date: 20191121
  Transmission Date: 20200122
  Serious: Yes (Death, Disabling, Other)
  Sender: FDA-Public Use
  Company Number: FR-009507513-1502FRA010804

PATIENT
  Age: 19 Year
  Sex: Male
  Weight: 65 kg

DRUGS (1)
  1. PROPECIA [Suspect]
     Active Substance: FINASTERIDE
     Indication: ALOPECIA
     Dosage: 1 MG, QD, (OCTAGONAL AND ORANGE TABLETS DALILY)
     Route: 048
     Dates: start: 201009, end: 201304

REACTIONS (49)
  - Amnesia [Fatal]
  - Carbon monoxide poisoning [Fatal]
  - Anxiety [Not Recovered/Not Resolved]
  - Testicular atrophy [Not Recovered/Not Resolved]
  - Loss of libido [Not Recovered/Not Resolved]
  - Dysbiosis [Unknown]
  - Skin texture abnormal [Unknown]
  - Skin disorder [Unknown]
  - Eye disorder [Unknown]
  - Splenomegaly [Unknown]
  - Hyperandrogenism [Fatal]
  - Alcohol intolerance [Not Recovered/Not Resolved]
  - Hypersensitivity [Unknown]
  - Angiopathy [Unknown]
  - Completed suicide [Fatal]
  - Male reproductive tract disorder [Not Recovered/Not Resolved]
  - Gynaecomastia [Not Recovered/Not Resolved]
  - Testicular pain [Not Recovered/Not Resolved]
  - Blood testosterone decreased [Unknown]
  - Vomiting [Unknown]
  - Cognitive disorder [Unknown]
  - Social anxiety disorder [Unknown]
  - Semen volume decreased [Unknown]
  - Eating disorder [Unknown]
  - Stress [Unknown]
  - Libido decreased [Fatal]
  - Insomnia [Not Recovered/Not Resolved]
  - Headache [Not Recovered/Not Resolved]
  - Gastrointestinal wall abnormal [Unknown]
  - Spermatozoa morphology abnormal [Unknown]
  - Muscle disorder [Unknown]
  - Disturbance in attention [Not Recovered/Not Resolved]
  - Food intolerance [Not Recovered/Not Resolved]
  - Ejaculation disorder [Not Recovered/Not Resolved]
  - Oesophageal ulcer [Unknown]
  - Varicocele [Unknown]
  - Gastrointestinal disorder [Unknown]
  - Asthenia [Fatal]
  - Penile size reduced [Not Recovered/Not Resolved]
  - Erectile dysfunction [Not Recovered/Not Resolved]
  - Abdominal pain lower [Unknown]
  - Major depression [Fatal]
  - Penile pain [Unknown]
  - Abdominal pain upper [Unknown]
  - Drug withdrawal syndrome [Fatal]
  - Blunted affect [Not Recovered/Not Resolved]
  - Suicidal ideation [Not Recovered/Not Resolved]
  - Fatigue [Not Recovered/Not Resolved]
  - Slow speech [Unknown]

NARRATIVE: CASE EVENT DATE: 201009
